FAERS Safety Report 8133066-6 (Version None)
Quarter: 2012Q1

REPORT INFORMATION
  Report Type: 
  Country: None (occurrence: None)
  Receive Date: 20120213
  Receipt Date: 20120201
  Transmission Date: 20120608
  Serious: Yes (Other)
  Sender: FDA-Public Use
  Company Number: PHHY2012KE011467

PATIENT
  Sex: Male

DRUGS (2)
  1. GLEEVEC [Suspect]
     Indication: CHRONIC MYELOID LEUKAEMIA
     Dosage: 400 MG, DAILY
     Dates: start: 20070515
  2. GLEEVEC [Suspect]
     Dosage: 600 MG, UNK

REACTIONS (2)
  - NEUTROPHIL COUNT INCREASED [None]
  - SPLENOMEGALY [None]
